FAERS Safety Report 4912993-4 (Version None)
Quarter: 2006Q1

REPORT INFORMATION
  Report Type: 
  Country: None (occurrence: None)
  Receive Date: 20060210
  Receipt Date: 20060130
  Transmission Date: 20060701
  Serious: Yes (Other)
  Sender: FDA-Public Use
  Company Number: C-06-0007

PATIENT
  Age: 4 Year
  Sex: Female
  Weight: 18.1439 kg

DRUGS (3)
  1. TETRA TANNATE PEDIATRIC SUSPENSION (PRODUCT CODE 8117) [Suspect]
     Indication: UPPER RESPIRATORY TRACT INFECTION
     Dosage: 1/2 TSP TWICE A DAY (ORAL)
     Route: 048
     Dates: start: 20060125, end: 20060127
  2. OMNICEF [Concomitant]
  3. DIMETAPP [Concomitant]

REACTIONS (3)
  - COUGH [None]
  - DRUG INEFFECTIVE [None]
  - INSOMNIA [None]
